FAERS Safety Report 8169951-9 (Version None)
Quarter: 2012Q1

REPORT INFORMATION
  Report Type: 
  Country: None (occurrence: None)
  Receive Date: 20120228
  Receipt Date: 20120228
  Transmission Date: 20120608
  Serious: Yes (Life-Threatening, Other)
  Sender: FDA-Public Use
  Company Number: None

PATIENT
  Age: 80 Year
  Sex: Male
  Weight: 73.2 kg

DRUGS (8)
  1. LISINOPRIL [Concomitant]
     Route: 048
  2. METFORMIN HCL [Concomitant]
     Route: 048
  3. ASPIRIN [Concomitant]
     Route: 048
  4. OMEGA-3 FATTY ACID [Concomitant]
     Route: 048
  5. METOPROLOL SUCCINATE EXTENDED RELEASE [Concomitant]
     Route: 048
  6. DOXAZOSIN [Concomitant]
     Route: 048
  7. PRADAXA [Suspect]
     Indication: ATRIAL FIBRILLATION
     Dosage: 150MG
     Route: 048
     Dates: start: 20110701, end: 20120128
  8. SIMVASTATIN [Concomitant]
     Route: 048

REACTIONS (6)
  - ATRIAL FIBRILLATION [None]
  - BLOOD PRESSURE INCREASED [None]
  - BRADYCARDIA [None]
  - ISCHAEMIC CEREBRAL INFARCTION [None]
  - HAEMATURIA [None]
  - HAEMORRHAGE [None]
